FAERS Safety Report 8953869 (Version 1)
Quarter: 2012Q4

REPORT INFORMATION
  Report Type: 
  Country: US (occurrence: US)
  Receive Date: 20121206
  Receipt Date: 20121206
  Transmission Date: 20130627
  Serious: Yes (Other)
  Sender: FDA-Public Use
  Company Number: CHPA2012US024245

PATIENT

DRUGS (1)
  1. EXCEDRIN UNKNOWN [Suspect]
     Dosage: Unk, Unk
     Route: 065

REACTIONS (4)
  - Drug dependence [Unknown]
  - Depressed mood [Unknown]
  - Headache [Unknown]
  - Irritability [Unknown]
